FAERS Safety Report 7309574-4 (Version None)
Quarter: 2011Q1

REPORT INFORMATION
  Report Type: 
  Country: None (occurrence: None)
  Receive Date: 20110223
  Receipt Date: 20110217
  Transmission Date: 20110831
  Serious: Yes (Other)
  Sender: FDA-Public Use
  Company Number: ES-MERCK-1102ESP00031

PATIENT

DRUGS (1)
  1. INVANZ [Suspect]
     Indication: CHOLECYSTITIS ACUTE
     Route: 065

REACTIONS (1)
  - EPILEPSY [None]
